FAERS Safety Report 16270434 (Version 2)
Quarter: 2020Q3

REPORT INFORMATION
  Report Type: Spontaneous
  Country: US (occurrence: US)
  Receive Date: 20190503
  Receipt Date: 20200728
  Transmission Date: 20201102
  Serious: Yes (Other)
  Sender: FDA-Public Use
  Company Number: US-TEVA-2019-US-1044110

PATIENT
  Age: 52 Year
  Sex: Male

DRUGS (5)
  1. DULOXETINE DR [Concomitant]
     Active Substance: DULOXETINE
     Route: 065
  2. TRAZODONE [Concomitant]
     Active Substance: TRAZODONE HYDROCHLORIDE
     Route: 065
  3. COPAXONE [Suspect]
     Active Substance: GLATIRAMER ACETATE
     Dosage: DOSE: 30 MILLIGRAM
     Route: 065
     Dates: start: 2014, end: 2018
  4. GABAPENTIN. [Concomitant]
     Active Substance: GABAPENTIN
     Route: 065
  5. TRAZODONE [Concomitant]
     Active Substance: TRAZODONE HYDROCHLORIDE
     Route: 065

REACTIONS (6)
  - Myocardial infarction [Unknown]
  - Chest pain [Unknown]
  - Liver injury [Not Recovered/Not Resolved]
  - Fear [Unknown]
  - Panic attack [Unknown]
  - Tremor [Unknown]
